FAERS Safety Report 8243823-3 (Version None)
Quarter: 2012Q1

REPORT INFORMATION
  Report Type: 
  Country: None (occurrence: None)
  Receive Date: 20120329
  Receipt Date: 20120326
  Transmission Date: 20120608
  Serious: Yes (Hospitalization)
  Sender: FDA-Public Use
  Company Number: US-PFIZER INC-2012077650

PATIENT
  Sex: Female
  Weight: 85.26 kg

DRUGS (13)
  1. RAMIPRIL [Concomitant]
     Dosage: UNK
  2. FISH OIL [Concomitant]
     Dosage: UNK
  3. GABAPENTIN [Concomitant]
     Dosage: 100 MG, UNK
  4. GLYBURIDE [Concomitant]
     Dosage: 5 MG, UNK
  5. FUROSEMIDE [Concomitant]
     Dosage: UNK
  6. IPRATROPIUM BROMIDE AND ALBUTEROL SULFATE [Concomitant]
     Dosage: UNK, 3X/DAY
  7. NORVASC [Suspect]
     Indication: HYPERTENSION
     Dosage: 5 MG, 1X/DAY
     Route: 048
  8. LORAZEPAM [Concomitant]
     Dosage: 1 MG, 3X/DAY
  9. SYNTHROID [Concomitant]
     Dosage: UNK
  10. ZOLOFT [Suspect]
     Indication: DEPRESSION
     Dosage: 100 MG, 1X/DAY
     Route: 048
  11. ACETYLSALICYLIC ACID [Concomitant]
     Dosage: UNK
  12. COREG [Concomitant]
     Indication: HYPERTENSION
     Dosage: UNK
  13. CRESTOR [Concomitant]
     Dosage: UNK

REACTIONS (7)
  - FLUID RETENTION [None]
  - CHRONIC OBSTRUCTIVE PULMONARY DISEASE [None]
  - DYSSTASIA [None]
  - DIABETES MELLITUS [None]
  - GAIT DISTURBANCE [None]
  - ARTHRITIS [None]
  - WEIGHT DECREASED [None]
